FAERS Safety Report 5751216-3 (Version None)
Quarter: 2008Q2

REPORT INFORMATION
  Report Type: 
  Country: None (occurrence: None)
  Receive Date: 20080528
  Receipt Date: 20080430
  Transmission Date: 20081010
  Serious: No
  Sender: FDA-Public Use
  Company Number: US-BOEHRINGER INGELHEIM GMBH, GERMANY-2008-BP-06839BP

PATIENT
  Age: 24 Year
  Sex: Male

DRUGS (2)
  1. FLOMAX [Suspect]
     Indication: PROSTATITIS
     Route: 048
     Dates: start: 20080429, end: 20080430
  2. ZYRTEC [Concomitant]

REACTIONS (2)
  - BURNING SENSATION [None]
  - EJACULATION FAILURE [None]
